FAERS Safety Report 9914542 (Version 1)
Quarter: 2014Q1

REPORT INFORMATION
  Report Type: Spontaneous
  Country: US (occurrence: US)
  Receive Date: 20140220
  Receipt Date: 20140220
  Transmission Date: 20141002
  Serious: No
  Sender: FDA-Public Use
  Company Number: US-BAYER-2014-026720

PATIENT
  Age: 79 Year
  Sex: Female
  Weight: 63 kg

DRUGS (12)
  1. ALEVE TABLET [Suspect]
     Indication: ARTHRITIS
     Dosage: 1 DF, PRN
     Route: 048
     Dates: start: 201401, end: 20140217
  2. BAYER ASPIRIN REGIMEN ADULT LOW STRENGTH [Concomitant]
     Indication: ISCHAEMIC HEART DISEASE PROPHYLAXIS
  3. PROTONIX [Concomitant]
  4. KLONOPIN [Concomitant]
     Dosage: 0.5 DF, UNK
  5. PRIMIDONE [Concomitant]
  6. TOPROL [Concomitant]
  7. LISINOPRIL [Concomitant]
  8. IMDUR [Concomitant]
  9. ETODOLAC [Concomitant]
  10. PAXIL [Concomitant]
  11. ZANTAC [Concomitant]
  12. OXYCODONE [Concomitant]

REACTIONS (3)
  - Dizziness [Recovered/Resolved]
  - Feeling abnormal [Recovered/Resolved]
  - Drug ineffective [Not Recovered/Not Resolved]
